FAERS Safety Report 9143051 (Version 3)
Quarter: 2013Q1

REPORT INFORMATION
  Report Type: Spontaneous
  Country: IT (occurrence: IT)
  Receive Date: 20130306
  Receipt Date: 20130326
  Transmission Date: 20140127
  Serious: Yes (Hospitalization, Other)
  Sender: FDA-Public Use
  Company Number: IT-PFIZER INC-2013077292

PATIENT
  Age: 57 Year
  Sex: Male

DRUGS (18)
  1. SUTENT [Suspect]
     Indication: RENAL CANCER STAGE IV
     Dosage: 37.5 MG, 1X/DAY, 28 DAYS CYCLE, (9 CYCLES TOTALLY)
     Route: 048
     Dates: start: 20120201, end: 20130201
  2. ZOMETA [Suspect]
     Indication: RENAL CANCER STAGE IV
     Dosage: 1 DF, MONTHLY (1 VIAL EVERY 28 DAYS, 9 CYCLES TOTALLY)
     Route: 042
     Dates: start: 20120201, end: 20130201
  3. TAREG [Concomitant]
     Dosage: 80 MG, UNK
  4. DIUREMID [Concomitant]
  5. LIBRADIN [Concomitant]
     Dosage: 10 MG, UNK
  6. SINTROM [Concomitant]
     Dosage: 4 MG AT 4 P.M. AS PER USUAL THERAPY: TREE DAYS 1/4 TABLET, 1 DAY 1/2 TABLET AND INR CONTROL
  7. METFORMIN [Concomitant]
  8. GLICLAZIDE [Concomitant]
  9. EUTIROX [Concomitant]
     Dosage: 50 UG 1 TABLET DAILY AT 7 A.M. FROM MONDAY TO FRIDAY, 1/2 TABLET ON SATURDAY AND SUNDAY
  10. EPREX [Concomitant]
     Dosage: 1 DF, 2X/WEEK
  11. GLURENOR [Concomitant]
     Dosage: 30 MG, 3X/DAY
  12. LASIX [Concomitant]
     Dosage: 50 MG, (2 TABLETS AT 4 P.M.)
  13. LASIX [Concomitant]
     Dosage: 125 MG, (1/4 TABLET AT 8 A.M.)
  14. ALLOPURINOL [Concomitant]
     Dosage: 150 MG, 1X/DAY (1/2 TABLET)
  15. LUVION [Concomitant]
     Dosage: 25 MG, 1X/DAY (1/2 TABLET AT 4 P.M.)
  16. LORTAAN [Concomitant]
     Dosage: 100 MG, 1X/DAY (AT 8 P.M.)
  17. PANTORC [Concomitant]
     Dosage: 40 MG, 1X/DAY (AT 7 A.M.)
  18. CARDICOR [Concomitant]
     Dosage: 2.5 MG 1/2 TABLET X 2 DAILY AT 8 A.M. AND AT 8 P.M.

REACTIONS (14)
  - Cardiac failure congestive [Recovered/Resolved with Sequelae]
  - Renal failure acute [Recovered/Resolved with Sequelae]
  - Dyspnoea [Recovering/Resolving]
  - Asthenia [Recovering/Resolving]
  - Alanine aminotransferase increased [Unknown]
  - Oedema peripheral [Recovering/Resolving]
  - Rhabdomyolysis [Unknown]
  - Pyrexia [Unknown]
  - Pneumonitis [Unknown]
  - Aspartate aminotransferase increased [Unknown]
  - Blood bilirubin increased [Unknown]
  - Gamma-glutamyltransferase increased [Unknown]
  - Anaemia [Unknown]
  - Platelet count decreased [Recovered/Resolved]
